FAERS Safety Report 22049359 (Version 1)
Quarter: 2023Q1

REPORT INFORMATION
  Report Type: Spontaneous
  Country: US (occurrence: None)
  Receive Date: 20230228
  Receipt Date: 20230228
  Transmission Date: 20230418
  Serious: No
  Sender: FDA-Public Use
  Company Number: None

PATIENT
  Age: 42 Year
  Sex: Female
  Weight: 87.54 kg

DRUGS (5)
  1. IBRANCE [Suspect]
     Active Substance: PALBOCICLIB
     Indication: Breast cancer female
     Dosage: OTHER FREQUENCY : 21D ON 7D OFF;?
     Route: 048
     Dates: start: 20200603
  2. CALCIUM [Concomitant]
     Active Substance: CALCIUM
  3. FASLODEX [Concomitant]
     Active Substance: FULVESTRANT
  4. LOPERAMIDE [Concomitant]
     Active Substance: LOPERAMIDE
  5. METOPROLOL [Concomitant]
     Active Substance: METOPROLOL

REACTIONS (5)
  - Headache [None]
  - Nausea [None]
  - Vomiting [None]
  - SARS-CoV-2 test positive [None]
  - Therapy interrupted [None]

NARRATIVE: CASE EVENT DATE: 20230228
